FAERS Safety Report 9123241 (Version 2)
Quarter: 2013Q2

REPORT INFORMATION
  Report Type: Spontaneous
  Country: US (occurrence: US)
  Receive Date: 20130227
  Receipt Date: 20130412
  Transmission Date: 20140414
  Serious: Yes (Death, Other)
  Sender: FDA-Public Use
  Company Number: US-SANOFI-AVENTIS-2013SA016552

PATIENT
  Age: 57 Year
  Sex: Female
  Weight: 127 kg

DRUGS (7)
  1. ZALTRAP [Suspect]
     Indication: COLON CANCER METASTATIC
     Route: 041
     Dates: start: 20121114, end: 20121204
  2. COUMADIN [Concomitant]
     Indication: THROMBOSIS
     Dates: start: 2012
  3. HYDROCHLOROTHIAZIDE [Concomitant]
     Indication: HYPERTENSION
  4. LIDOCAINE [Concomitant]
     Indication: PAIN
     Dates: start: 201112
  5. TYLENOL W/CODEINE NO. 3 [Concomitant]
     Indication: PAIN
     Dosage: 300/30 MG
  6. METHOTREXATE [Concomitant]
     Indication: ARTHRITIS
  7. PROTONIX [Concomitant]
     Indication: GASTROOESOPHAGEAL REFLUX DISEASE

REACTIONS (5)
  - Cardiac arrest [Fatal]
  - Gastrointestinal haemorrhage [Unknown]
  - Thrombocytopenia [Unknown]
  - Haemorrhage [Unknown]
  - Diarrhoea [Unknown]
